FAERS Safety Report 16716888 (Version 3)
Quarter: 2020Q2

REPORT INFORMATION
  Report Type: Report from Study
  Country: DK (occurrence: DK)
  Receive Date: 20190819
  Receipt Date: 20200402
  Transmission Date: 20200713
  Serious: Yes (Other)
  Sender: FDA-Public Use
  Company Number: DK-NOVOPROD-678897

PATIENT
  Age: 65 Year
  Sex: Male
  Weight: 134 kg

DRUGS (14)
  1. CARVEDILOL. [Concomitant]
     Active Substance: CARVEDILOL
     Dosage: 25.0,MG,
     Dates: start: 20190206
  2. FUROSEMIDE. [Concomitant]
     Active Substance: FUROSEMIDE
     Dosage: 40 MG
     Dates: start: 20181203, end: 20190407
  3. SEMAGLUTIDE B 3.0 MG/ML PDS290 [Suspect]
     Active Substance: SEMAGLUTIDE
     Indication: OBESITY
     Dosage: 2.4,MG,ONCE PER WEEK
     Route: 058
     Dates: start: 20180830, end: 20190111
  4. LOSARTAN. [Concomitant]
     Active Substance: LOSARTAN
     Dosage: 50 MG
     Dates: start: 20181103, end: 20190225
  5. LOSARTAN. [Concomitant]
     Active Substance: LOSARTAN
     Dosage: 12.5 MG
     Dates: start: 20190226, end: 20190328
  6. CARVEDILOL. [Concomitant]
     Active Substance: CARVEDILOL
     Dosage: 25 MG
     Dates: start: 20190206
  7. LOSARTAN. [Concomitant]
     Active Substance: LOSARTAN
     Dosage: 12.5,MG,
     Dates: start: 20190226, end: 20190328
  8. SEMAGLUTIDE B 3.0 MG/ML PDS290 [Suspect]
     Active Substance: SEMAGLUTIDE
     Indication: OBESITY
     Dosage: 2.4,MG,ONCE PER WEEK
     Route: 058
     Dates: start: 20190118
  9. SEMAGLUTIDE B 3.0 MG/ML PDS290 [Suspect]
     Active Substance: SEMAGLUTIDE
     Dosage: 1 MG, QW
     Route: 058
     Dates: start: 20190517
  10. FUROSEMIDE. [Concomitant]
     Active Substance: FUROSEMIDE
     Indication: CARDIAC FAILURE CHRONIC
     Dosage: 80.0,MG,
     Dates: start: 20110901, end: 20181202
  11. LOSARTAN. [Concomitant]
     Active Substance: LOSARTAN
     Indication: HYPERTENSION
     Dosage: 50.0,MG,
     Dates: start: 2011, end: 20181121
  12. LOSARTAN. [Concomitant]
     Active Substance: LOSARTAN
     Dosage: 50.0,MG,
     Dates: start: 20181103, end: 20190225
  13. CARVEDILOL. [Concomitant]
     Active Substance: CARVEDILOL
     Indication: MYOCARDIAL ISCHAEMIA
     Dosage: 50 MG
     Dates: start: 20110901, end: 20190205
  14. CARVEDILOL. [Concomitant]
     Active Substance: CARVEDILOL
     Dosage: 50.0,MG,
     Dates: start: 20110901, end: 20190205

REACTIONS (1)
  - Hypotension [Recovered/Resolved]

NARRATIVE: CASE EVENT DATE: 20190313
